FAERS Safety Report 8353586-9 (Version None)
Quarter: 2012Q2

REPORT INFORMATION
  Report Type: 
  Country: None (occurrence: None)
  Receive Date: 20120511
  Receipt Date: 20110630
  Transmission Date: 20120825
  Serious: No
  Sender: FDA-Public Use
  Company Number: US-GLAXOSMITHKLINE-A0935240A

PATIENT
  Age: 64 Year
  Sex: Female

DRUGS (3)
  1. TYKERB [Suspect]
     Indication: BREAST CANCER
     Dosage: 1250MG PER DAY
     Route: 065
     Dates: start: 20110616, end: 20110701
  2. XELODA [Concomitant]
     Indication: BREAST CANCER
     Dosage: 1500MG TWICE PER DAY
     Route: 048
     Dates: start: 20110616
  3. HERCEPTIN [Concomitant]
     Indication: BREAST CANCER
     Dosage: 160MG VARIABLE DOSE
     Route: 042
     Dates: start: 20110616

REACTIONS (3)
  - ABDOMINAL PAIN UPPER [None]
  - FAECES PALE [None]
  - DIARRHOEA [None]
